FAERS Safety Report 8555158-X (Version None)
Quarter: 2012Q3

REPORT INFORMATION
  Report Type: 
  Country: None (occurrence: None)
  Receive Date: 20120731
  Receipt Date: 20120723
  Transmission Date: 20120928
  Serious: Yes (Other)
  Sender: FDA-Public Use
  Company Number: US-ABBOTT-12P-163-0960174-00

PATIENT
  Sex: Female

DRUGS (3)
  1. LUPRON DEPOT [Suspect]
     Indication: UTERINE LEIOMYOMA
     Dates: start: 20120117
  2. LISINOPRIL [Concomitant]
     Indication: PRODUCT USED FOR UNKNOWN INDICATION
  3. ADD BACK [Suspect]
     Indication: HORMONE REPLACEMENT THERAPY
     Dates: start: 20120101, end: 20120101

REACTIONS (6)
  - DYSPNOEA [None]
  - FALL [None]
  - ANXIETY [None]
  - VAGINAL HAEMORRHAGE [None]
  - DIZZINESS [None]
  - MUSCLE TIGHTNESS [None]
